FAERS Safety Report 8247028-1 (Version None)
Quarter: 2012Q1

REPORT INFORMATION
  Report Type: 
  Country: None (occurrence: None)
  Receive Date: 20120330
  Receipt Date: 20120330
  Transmission Date: 20120608
  Serious: No
  Sender: FDA-Public Use
  Company Number: None

PATIENT
  Age: 47 Year
  Sex: Female
  Weight: 68.038 kg

DRUGS (1)
  1. LAMICTAL [Suspect]
     Indication: BIPOLAR DISORDER
     Dosage: 25 MG
     Route: 048
     Dates: start: 20120315, end: 20120323

REACTIONS (12)
  - PYREXIA [None]
  - LYMPHADENOPATHY [None]
  - NAUSEA [None]
  - RASH ERYTHEMATOUS [None]
  - PRURITUS [None]
  - HEADACHE [None]
  - PARAESTHESIA [None]
  - BACK PAIN [None]
  - ABDOMINAL PAIN [None]
  - DISCOMFORT [None]
  - CHILLS [None]
  - FATIGUE [None]
